FAERS Safety Report 6316137-6 (Version None)
Quarter: 2009Q3

REPORT INFORMATION
  Report Type: 
  Country: None (occurrence: None)
  Receive Date: 20090820
  Receipt Date: 20090814
  Transmission Date: 20100115
  Serious: Yes (Other)
  Sender: FDA-Public Use
  Company Number: US-BAYER-200927561NA

PATIENT
  Age: 62 Year
  Sex: Male
  Weight: 109 kg

DRUGS (7)
  1. NEXAVAR [Suspect]
     Indication: GASTROINTESTINAL STROMAL TUMOUR
     Dosage: TOTAL DAILY DOSE: 800 MG  UNIT DOSE: 200 MG
     Route: 048
     Dates: start: 20090601
  2. LISINOPRIL [Concomitant]
  3. FEXOFENADINE [Concomitant]
  4. CLONIDINE HCL [Concomitant]
     Dosage: 1-2 X/DAY
  5. LEVOXYL [Concomitant]
  6. HYDROCHLOROTHIAZIDE [Concomitant]
  7. FINASTERIDE [Concomitant]

REACTIONS (2)
  - BLOOD PRESSURE INCREASED [None]
  - HYPERTENSION [None]
